FAERS Safety Report 17759658 (Version 1)
Quarter: 2020Q2

REPORT INFORMATION
  Report Type: Other
  Country: CN (occurrence: CN)
  Receive Date: 20200508
  Receipt Date: 20200508
  Transmission Date: 20200714
  Serious: Yes (Hospitalization, Other)
  Sender: FDA-Public Use
  Company Number: CN-HEALTHCARE PHARMACEUTICALS LTD.-2083612

PATIENT
  Age: 62 Year
  Sex: Female

DRUGS (3)
  1. GLUCOSE (DEXTROSE MONOHYDRATE) [Suspect]
     Active Substance: DEXTROSE MONOHYDRATE
     Route: 041
  2. DOXORUBICIN HYDROCHLORIDE. [Suspect]
     Active Substance: DOXORUBICIN HYDROCHLORIDE
     Indication: GASTROINTESTINAL LYMPHOMA
     Route: 041
  3. DEXAMETHASONE. [Suspect]
     Active Substance: DEXAMETHASONE
     Route: 065

REACTIONS (6)
  - Dyspnoea [Recovering/Resolving]
  - Anaphylactic shock [Recovering/Resolving]
  - Palpitations [Recovering/Resolving]
  - Confusional state [Recovering/Resolving]
  - Dysstasia [Recovering/Resolving]
  - Headache [Recovering/Resolving]

NARRATIVE: CASE EVENT DATE: 201708
